FAERS Safety Report 8345611-6 (Version None)
Quarter: 2012Q2

REPORT INFORMATION
  Report Type: 
  Country: None (occurrence: None)
  Receive Date: 20120508
  Receipt Date: 20120426
  Transmission Date: 20120825
  Serious: Yes (Other)
  Sender: FDA-Public Use
  Company Number: US-ROCHE-1049838

PATIENT
  Sex: Male

DRUGS (9)
  1. CYCLOPHOSPHAMIDE [Concomitant]
     Indication: B-CELL LYMPHOMA STAGE IV
  2. ATENOLOL [Concomitant]
  3. PRILOSEC [Concomitant]
  4. BENICAR [Concomitant]
  5. RITUXAN [Suspect]
     Indication: DIFFUSE LARGE B-CELL LYMPHOMA STAGE IV
     Route: 042
     Dates: start: 20120302
  6. VINCRISTINE [Concomitant]
     Indication: B-CELL LYMPHOMA STAGE IV
  7. PREDNISONE TAB [Concomitant]
     Indication: B-CELL LYMPHOMA STAGE IV
  8. RANITIDINE [Concomitant]
  9. DOXORUBICIN HCL [Concomitant]
     Indication: B-CELL LYMPHOMA STAGE IV

REACTIONS (2)
  - VISUAL IMPAIRMENT [None]
  - POSTERIOR REVERSIBLE ENCEPHALOPATHY SYNDROME [None]
